FAERS Safety Report 6438574-1 (Version None)
Quarter: 2009Q4

REPORT INFORMATION
  Report Type: 
  Country: None (occurrence: None)
  Receive Date: 20091112
  Receipt Date: 20091020
  Transmission Date: 20100525
  Serious: No
  Sender: FDA-Public Use
  Company Number: US-ALLERGAN-0914578US

PATIENT
  Age: 85 Year
  Sex: Female

DRUGS (4)
  1. COMBIGAN [Suspect]
     Indication: GLAUCOMA
     Dosage: UNK
     Route: 047
  2. VALIUM [Concomitant]
  3. MAVIK [Concomitant]
     Indication: HYPERTENSION
  4. FOLIC ACID [Concomitant]

REACTIONS (7)
  - ASTHENIA [None]
  - DYSPNOEA [None]
  - EYE PAIN [None]
  - FLUSHING [None]
  - NERVOUSNESS [None]
  - PALPITATIONS [None]
  - SOMNOLENCE [None]
